FAERS Safety Report 7929990 (Version 21)
Quarter: 2014Q1

REPORT INFORMATION
  Report Type: Spontaneous
  Country: US (occurrence: US)
  Receive Date: 20110504
  Receipt Date: 20140207
  Transmission Date: 20141002
  Serious: Yes (Other)
  Sender: FDA-Public Use
  Company Number: PHEH2011US00476

PATIENT
  Age: 63 Year
  Sex: Male

DRUGS (4)
  1. ZOMETA [Suspect]
     Dosage: 4 MG, QMO
     Route: 041
  2. ELIGARD [Concomitant]
  3. CASODEX [Concomitant]
  4. FLOMAX//TAMSULOSIN HYDROCHLORIDE [Concomitant]

REACTIONS (107)
  - Osteonecrosis of jaw [Unknown]
  - Pain [Unknown]
  - Infection [Unknown]
  - Deformity [Unknown]
  - Injury [Unknown]
  - Emotional distress [Unknown]
  - Anxiety [Unknown]
  - Physical disability [Unknown]
  - Toothache [Unknown]
  - Gingival swelling [Unknown]
  - Hypertension [Unknown]
  - Sleep apnoea syndrome [Unknown]
  - Arthropathy [Unknown]
  - Abdominal bruit [Unknown]
  - Aortic arteriosclerosis [Unknown]
  - Coeliac artery occlusion [Unknown]
  - Joint swelling [Unknown]
  - Prostate cancer [Unknown]
  - Pollakiuria [Unknown]
  - Joint crepitation [Unknown]
  - Cartilage injury [Unknown]
  - Cataract nuclear [Unknown]
  - Upper respiratory tract infection [Unknown]
  - Bronchitis [Unknown]
  - Sinusitis [Unknown]
  - Blindness unilateral [Unknown]
  - Retinal detachment [Unknown]
  - Osteoarthritis [Unknown]
  - Metastases to bone [Unknown]
  - Pulmonary mass [Unknown]
  - Aortic stenosis [Unknown]
  - Atelectasis [Unknown]
  - Diverticulum intestinal [Unknown]
  - Cellulitis [Unknown]
  - Tooth loss [Unknown]
  - Patellofemoral pain syndrome [Unknown]
  - Granuloma [Unknown]
  - Gingival bleeding [Unknown]
  - Arthritis [Unknown]
  - Neuropathy peripheral [Unknown]
  - Glaucoma [Unknown]
  - Metastases to spine [Unknown]
  - Spinal osteoarthritis [Unknown]
  - Histoplasmosis [Unknown]
  - Actinic keratosis [Unknown]
  - Lentigo [Unknown]
  - Seborrhoeic keratosis [Unknown]
  - Enthesopathy [Unknown]
  - Visual acuity reduced [Unknown]
  - Vision blurred [Unknown]
  - Eye pain [Unknown]
  - Ocular discomfort [Unknown]
  - Lacrimation increased [Unknown]
  - Photophobia [Unknown]
  - Conjunctival hyperaemia [Unknown]
  - Conjunctival oedema [Unknown]
  - Conjunctivitis allergic [Unknown]
  - Conjunctivitis [Unknown]
  - Gingivitis [Unknown]
  - Periodontal disease [Unknown]
  - Anaemia [Unknown]
  - Melanocytic naevus [Unknown]
  - Xerosis [Unknown]
  - Dry eye [Unknown]
  - Presbyopia [Unknown]
  - Chest pain [Unknown]
  - Dyspnoea [Unknown]
  - Insomnia [Unknown]
  - Dizziness [Unknown]
  - Haemoptysis [Unknown]
  - Temperature intolerance [Unknown]
  - Coronary artery disease [Unknown]
  - Hypovitaminosis [Unknown]
  - Cough [Unknown]
  - Dyspepsia [Unknown]
  - Nasal congestion [Unknown]
  - Rhinitis [Unknown]
  - Oropharyngeal pain [Unknown]
  - Ear pain [Unknown]
  - Syncope [Unknown]
  - Memory impairment [Unknown]
  - Muscle spasms [Unknown]
  - Paraesthesia [Unknown]
  - Ear pruritus [Unknown]
  - Haematemesis [Unknown]
  - Urticaria [Unknown]
  - Butterfly rash [Unknown]
  - Papule [Unknown]
  - Mouth ulceration [Unknown]
  - Periodontitis [Unknown]
  - Oral herpes [Unknown]
  - Osteosclerosis [Unknown]
  - Mitral valve incompetence [Unknown]
  - Tricuspid valve incompetence [Unknown]
  - Vertebral osteophyte [Unknown]
  - Erythema [Unknown]
  - Eye swelling [Unknown]
  - Bradycardia [Unknown]
  - Obesity [Unknown]
  - Fatigue [Unknown]
  - Arthralgia [Unknown]
  - Headache [Unknown]
  - Pain in extremity [Unknown]
  - Hypoaesthesia [Unknown]
  - Vomiting [Unknown]
  - Abdominal pain [Unknown]
  - Back pain [Unknown]
